FAERS Safety Report 17284342 (Version 1)
Quarter: 2020Q1

REPORT INFORMATION
  Report Type: Spontaneous
  Country: US (occurrence: US)
  Receive Date: 20200117
  Receipt Date: 20200117
  Transmission Date: 20200409
  Serious: Yes (Other)
  Sender: FDA-Public Use
  Company Number: US-JACOBUS PHARMACEUTICAL COMPANY, INC.-2079135

PATIENT
  Age: 61 Year
  Sex: Female
  Weight: 78 kg

DRUGS (4)
  1. TACROLIMUS. [Suspect]
     Active Substance: TACROLIMUS
  2. SIROLIMUS. [Suspect]
     Active Substance: SIROLIMUS
  3. GILTERITINIB [Suspect]
     Active Substance: GILTERITINIB
     Dates: start: 20190409, end: 20190507
  4. DAPSONE. [Suspect]
     Active Substance: DAPSONE
     Dates: start: 20190314

REACTIONS (1)
  - Anaemia [None]
